FAERS Safety Report 10529988 (Version 1)
Quarter: 2014Q4

REPORT INFORMATION
  Report Type: Spontaneous
  Country: US (occurrence: None)
  Receive Date: 20141020
  Receipt Date: 20141020
  Transmission Date: 20150528
  Serious: No
  Sender: FDA-Public Use
  Company Number: None

PATIENT
  Age: 35 Year
  Sex: Male
  Weight: 83.92 kg

DRUGS (1)
  1. LISINOPRIL 20 MG LUPIN PHRM -WALMART PHARMACY- [Suspect]
     Active Substance: LISINOPRIL
     Indication: HYPERTENSION
     Route: 048
     Dates: start: 20140716, end: 20140721

REACTIONS (5)
  - Tachycardia [None]
  - Tinnitus [None]
  - Palpitations [None]
  - Head discomfort [None]
  - Flushing [None]

NARRATIVE: CASE EVENT DATE: 20140716
